FAERS Safety Report 18763230 (Version 1)
Quarter: 2021Q1

REPORT INFORMATION
  Report Type: Spontaneous
  Country: US (occurrence: US)
  Receive Date: 20210120
  Receipt Date: 20210120
  Transmission Date: 20210419
  Serious: Yes (Life-Threatening, Hospitalization)
  Sender: FDA-Public Use
  Company Number: None

PATIENT
  Age: 41 Year
  Sex: Male
  Weight: 92.7 kg

DRUGS (6)
  1. ARMODAFINIL. [Suspect]
     Active Substance: ARMODAFINIL
     Indication: SOMNOLENCE
     Dosage: ?          QUANTITY:.5 TABLET(S);?
     Route: 048
     Dates: start: 20201215, end: 20201220
  2. METOPROLOL. [Concomitant]
     Active Substance: METOPROLOL
  3. DAILY VITAMIN [Concomitant]
     Active Substance: VITAMINS
  4. BOTOX [Concomitant]
     Active Substance: ONABOTULINUMTOXINA
  5. TRAZODONE [Concomitant]
     Active Substance: TRAZODONE HYDROCHLORIDE
  6. CELEXA [Concomitant]
     Active Substance: CITALOPRAM HYDROBROMIDE

REACTIONS (2)
  - Abdominal pain [None]
  - Stevens-Johnson syndrome [None]

NARRATIVE: CASE EVENT DATE: 20201220
